FAERS Safety Report 9540516 (Version 2)
Quarter: 2013Q3

REPORT INFORMATION
  Report Type: Spontaneous
  Country: PL (occurrence: PL)
  Receive Date: 20130920
  Receipt Date: 20130930
  Transmission Date: 20140515
  Serious: Yes (Death)
  Sender: FDA-Public Use
  Company Number: PL-B.I. PHARMACEUTICALS,INC./RIDGEFIELD-2013-BI-29385PN

PATIENT
  Age: 68 Year
  Sex: Female

DRUGS (9)
  1. PRADAXA [Suspect]
     Indication: ATRIAL FIBRILLATION
     Dosage: 300 MG
     Route: 048
     Dates: start: 2012
  2. PRADAXA [Suspect]
     Dosage: 220 MG
     Route: 048
     Dates: start: 20130326, end: 201308
  3. BISACOR [Concomitant]
     Dosage: 2.5 MG
  4. FUROSEMIDUM [Concomitant]
     Dosage: 20 MG
  5. HYGROTON [Concomitant]
     Dosage: 25 MG
  6. BEMECOR (METILDIGOXINUM) [Concomitant]
     Dosage: 50 MCG
  7. EUTHYROX N ( LEVOTHYROXINUM NATRICUM) [Concomitant]
     Dosage: 75 MG
  8. TRITACE (RAMIPRILUM) [Concomitant]
     Dosage: 2.5 MG
  9. TULIP (ATORVASTATINUM) [Concomitant]
     Dosage: 40 MG

REACTIONS (2)
  - Cardiac valve disease [Fatal]
  - Renal failure [Unknown]
